FAERS Safety Report 16303236 (Version 5)
Quarter: 2019Q2

REPORT INFORMATION
  Report Type: Spontaneous
  Country: BR (occurrence: BR)
  Receive Date: 20190513
  Receipt Date: 20190615
  Transmission Date: 20190711
  Serious: Yes (Death, Life-Threatening, Hospitalization, Other)
  Sender: FDA-Public Use
  Company Number: BR-009507513-1904BRA003092

PATIENT
  Age: 74 Year
  Sex: Male
  Weight: 89 kg

DRUGS (3)
  1. KEYTRUDA [Suspect]
     Active Substance: PEMBROLIZUMAB
     Indication: LUNG NEOPLASM MALIGNANT
     Dosage: 100MG/4 ML, 200MG ONCE A DAY, EVERY 21 DAYS
     Dates: start: 20190321
  2. KEYTRUDA [Suspect]
     Active Substance: PEMBROLIZUMAB
     Dosage: 200MG ONCE A DAY, EVERY 21 DAYS
     Dates: start: 20190417
  3. KEYTRUDA [Suspect]
     Active Substance: PEMBROLIZUMAB
     Dosage: 200MG ONCE A DAY, EVERY 21 DAYS
     Dates: start: 20190507

REACTIONS (11)
  - Adverse reaction [Not Recovered/Not Resolved]
  - Adrenal insufficiency [Unknown]
  - Urticaria [Recovered/Resolved]
  - Hyperaemia [Recovered/Resolved]
  - Hyperaemia [Recovered/Resolved]
  - Death [Fatal]
  - Lung infection [Unknown]
  - Pulmonary sepsis [Unknown]
  - Acute kidney injury [Unknown]
  - Urticaria [Recovered/Resolved]
  - Pneumonitis [Unknown]

NARRATIVE: CASE EVENT DATE: 2019
